FAERS Safety Report 11853450 (Version 2)
Quarter: 2016Q1

REPORT INFORMATION
  Report Type: Spontaneous
  Country: CO (occurrence: CO)
  Receive Date: 20151218
  Receipt Date: 20160210
  Transmission Date: 20160526
  Serious: Yes (Death, Hospitalization, Other)
  Sender: FDA-Public Use
  Company Number: CO-ALEXION PHARMACEUTICALS INC.-A201505191

PATIENT
  Sex: Female
  Weight: 6.2 kg

DRUGS (1)
  1. SOLIRIS [Suspect]
     Active Substance: ECULIZUMAB
     Indication: HAEMOLYTIC URAEMIC SYNDROME
     Dosage: 300 MG, SINGLE
     Route: 042
     Dates: start: 20151210, end: 20151210

REACTIONS (3)
  - Multiple organ dysfunction syndrome [Fatal]
  - Pneumococcal bacteraemia [Fatal]
  - Septic shock [Fatal]
